FAERS Safety Report 4986097-9 (Version None)
Quarter: 2006Q1

REPORT INFORMATION
  Report Type: 
  Country: None (occurrence: None)
  Receive Date: 20060309
  Receipt Date: 20050714
  Transmission Date: 20060701
  Serious: Yes (Other)
  Sender: FDA-Public Use
  Company Number: 410937

PATIENT
  Age: 17 Year
  Sex: Male

DRUGS (2)
  1. ACCUTANE [Suspect]
     Dosage: ORAL
     Route: 048
  2. AMNESTEEM [Suspect]
     Dosage: ORAL
     Route: 048
     Dates: end: 20050415

REACTIONS (1)
  - LIVER FUNCTION TEST ABNORMAL [None]
